FAERS Safety Report 4481290-6 (Version None)
Quarter: 2004Q4

REPORT INFORMATION
  Report Type: 
  Country: None (occurrence: None)
  Receive Date: 20040923
  Receipt Date: 20040812
  Transmission Date: 20050328
  Serious: No
  Sender: FDA-Public Use
  Company Number: USA030638850

PATIENT
  Age: 74 Year
  Sex: Female
  Weight: 59 kg

DRUGS (15)
  1. FORTEO [Suspect]
     Indication: BONE DISORDER
     Dosage: 20 UG/L DAY
     Dates: start: 20030501
  2. FORTEO [Suspect]
     Indication: OSTEOPOROSIS
     Dosage: 20 UG/L DAY
     Dates: start: 20030501
  3. COUMADIN [Concomitant]
  4. PREDNISONE [Concomitant]
  5. TENORMIN [Concomitant]
  6. XANAX [Concomitant]
  7. FERROUS SULFATE TAB [Concomitant]
  8. INTAL [Concomitant]
  9. LOPRESSOR [Concomitant]
  10. VITAMIN B12 FOR INJECTION (CYANOCOBALAMIN) [Concomitant]
  11. CENTRUM [Concomitant]
  12. LORTAB [Concomitant]
  13. LASIX [Concomitant]
  14. POTASSIUM [Concomitant]
  15. CALTRATE + D [Concomitant]

REACTIONS (6)
  - BLOOD PRESSURE INCREASED [None]
  - BODY HEIGHT DECREASED [None]
  - INJECTION SITE ERYTHEMA [None]
  - PIGMENTATION DISORDER [None]
  - PROTHROMBIN TIME PROLONGED [None]
  - PULSE PRESSURE INCREASED [None]
